FAERS Safety Report 5210453-7 (Version None)
Quarter: 2007Q1

REPORT INFORMATION
  Report Type: 
  Country: None (occurrence: None)
  Receive Date: 20070116
  Receipt Date: 20070116
  Transmission Date: 20070707
  Serious: Yes (Hospitalization)
  Sender: FDA-Public Use
  Company Number: None

PATIENT
  Age: 53 Year
  Sex: Male
  Weight: 98.4 kg

DRUGS (1)
  1. AZATHIOPRINE [Suspect]

REACTIONS (5)
  - COLITIS ULCERATIVE [None]
  - DIARRHOEA [None]
  - ENTEROCOLITIS INFECTIOUS [None]
  - NAUSEA [None]
  - VOMITING [None]
